FAERS Safety Report 7469797-0 (Version None)
Quarter: 2011Q2

REPORT INFORMATION
  Report Type: 
  Country: None (occurrence: None)
  Receive Date: 20110510
  Receipt Date: 20110426
  Transmission Date: 20111010
  Serious: Yes (Hospitalization)
  Sender: FDA-Public Use
  Company Number: US-AMGEN-USASP2011021790

PATIENT
  Age: 45 Year
  Sex: Female

DRUGS (2)
  1. ORENCIA [Concomitant]
  2. ENBREL [Suspect]
     Indication: RHEUMATOID ARTHRITIS
     Dosage: 50 MG, QWK
     Dates: start: 20100305, end: 20110101

REACTIONS (6)
  - OESOPHAGEAL PAIN [None]
  - ERYTHEMA [None]
  - INJECTION SITE REACTION [None]
  - GASTROINTESTINAL DISORDER [None]
  - RHEUMATOID ARTHRITIS [None]
  - GASTROINTESTINAL PAIN [None]
